FAERS Safety Report 23799528 (Version 1)
Quarter: 2024Q2

REPORT INFORMATION
  Report Type: Spontaneous
  Country: US (occurrence: None)
  Receive Date: 20240428
  Receipt Date: 20240428
  Transmission Date: 20240716
  Serious: No
  Sender: FDA-Public Use
  Company Number: None

PATIENT
  Age: 38 Year
  Sex: Female
  Weight: 71.1 kg

DRUGS (1)
  1. DEPO-PROVERA [Suspect]
     Active Substance: MEDROXYPROGESTERONE ACETATE

REACTIONS (4)
  - Thrombosis [None]
  - Vaginal haemorrhage [None]
  - Haemoglobin decreased [None]
  - Dyspnoea [None]

NARRATIVE: CASE EVENT DATE: 20240129
